FAERS Safety Report 11061093 (Version 1)
Quarter: 2015Q2

REPORT INFORMATION
  Report Type: Spontaneous
  Country: US (occurrence: US)
  Receive Date: 20150424
  Receipt Date: 20150424
  Transmission Date: 20150821
  Serious: Yes (Hospitalization, Other)
  Sender: FDA-Public Use
  Company Number: US-AMGEN-USASP2015038987

PATIENT
  Age: 73 Year
  Sex: Male

DRUGS (2)
  1. NEULASTA [Suspect]
     Active Substance: PEGFILGRASTIM
     Indication: WHITE BLOOD CELL COUNT INCREASED
     Dosage: EVERY TWO TO THREE WEEKS
     Route: 065
  2. NEULASTA [Suspect]
     Active Substance: PEGFILGRASTIM
     Indication: NEUTROPHIL COUNT INCREASED

REACTIONS (12)
  - Staphylococcal infection [Unknown]
  - Platelet count abnormal [Unknown]
  - Gastroenteritis norovirus [Unknown]
  - Metastases to bladder [Unknown]
  - Haemoglobin decreased [Unknown]
  - Bladder transitional cell carcinoma recurrent [Unknown]
  - Neutrophil count abnormal [Unknown]
  - Asthenia [Unknown]
  - Pneumonia [Unknown]
  - Blood count abnormal [Unknown]
  - Disease progression [Unknown]
  - Haematocrit decreased [Unknown]
